FAERS Safety Report 5340487-3 (Version None)
Quarter: 2007Q2

REPORT INFORMATION
  Report Type: 
  Country: None (occurrence: None)
  Receive Date: 20070531
  Receipt Date: 20070523
  Transmission Date: 20071010
  Serious: Yes (Life-Threatening, Hospitalization)
  Sender: FDA-Public Use
  Company Number: GB-GENENTECH-241695

PATIENT
  Sex: Male

DRUGS (4)
  1. MABTHERA [Suspect]
     Indication: NON-HODGKIN'S LYMPHOMA
     Dosage: 700 MG, UNK
     Route: 042
     Dates: start: 20070308, end: 20070324
  2. FILGRASTIM [Suspect]
     Indication: NON-HODGKIN'S LYMPHOMA
     Dosage: 48 UNIT, UNK
     Route: 058
     Dates: start: 20070314, end: 20070510
  3. CYCLOPHOSPHAMIDE [Concomitant]
     Indication: NON-HODGKIN'S LYMPHOMA
     Dosage: 1400 MG, UNK
     Route: 042
     Dates: start: 20070308
  4. VINCRISTINE [Concomitant]
     Indication: NON-HODGKIN'S LYMPHOMA
     Dosage: 2 MG, UNK
     Route: 042
     Dates: start: 20070308

REACTIONS (1)
  - PULMONARY FIBROSIS [None]
